FAERS Safety Report 13940324 (Version 2)
Quarter: 2017Q3

REPORT INFORMATION
  Report Type: Report from Study
  Country: GB (occurrence: GB)
  Receive Date: 20170906
  Receipt Date: 20170924
  Transmission Date: 20171127
  Serious: Yes (Other)
  Sender: FDA-Public Use
  Company Number: GB-IPSEN BIOPHARMACEUTICALS, INC.-2017-10150

PATIENT
  Age: 2 Year
  Sex: Female
  Weight: 8.1 kg

DRUGS (6)
  1. INCRELEX [Suspect]
     Active Substance: MECASERMIN
     Route: 058
     Dates: start: 20160923, end: 20161005
  2. INCRELEX [Suspect]
     Active Substance: MECASERMIN
     Route: 058
     Dates: start: 20170222, end: 20170326
  3. INCRELEX [Suspect]
     Active Substance: MECASERMIN
     Route: 058
     Dates: start: 20160614, end: 20160922
  4. INCRELEX [Suspect]
     Active Substance: MECASERMIN
     Route: 058
     Dates: start: 20161006, end: 20161221
  5. INCRELEX [Suspect]
     Active Substance: MECASERMIN
     Route: 058
     Dates: start: 20170327
  6. INCRELEX [Suspect]
     Active Substance: MECASERMIN
     Indication: PRIMARY INSULIN LIKE GROWTH FACTOR-1 DEFICIENCY
     Route: 058
     Dates: start: 20161201, end: 20170221

REACTIONS (1)
  - Epiphysiolysis [Not Recovered/Not Resolved]

NARRATIVE: CASE EVENT DATE: 20170208
